FAERS Safety Report 8200081-3 (Version None)
Quarter: 2012Q1

REPORT INFORMATION
  Report Type: 
  Country: None (occurrence: None)
  Receive Date: 20120312
  Receipt Date: 20120306
  Transmission Date: 20120608
  Serious: Yes (Hospitalization)
  Sender: FDA-Public Use
  Company Number: GB-SHIRE-ALL1-2011-03681

PATIENT
  Sex: Male
  Weight: 19.3 kg

DRUGS (3)
  1. CHLORPHENIRAMINE MALEATE [Concomitant]
     Indication: PREMEDICATION
     Dosage: UNK, UNKNOWN
     Route: 065
  2. IDURSULFASE [Suspect]
     Indication: MUCOPOLYSACCHARIDOSIS II
     Dosage: 10.08 MG, 1X/WEEK(0.48MG/KG WEEKLY)
     Route: 041
     Dates: start: 20070405
  3. IDURSULFASE [Suspect]
     Dosage: 1.2 MG/KG, 1X/WEEK

REACTIONS (2)
  - DEVICE RELATED INFECTION [None]
  - LOWER RESPIRATORY TRACT INFECTION [None]
